FAERS Safety Report 23537235 (Version 2)
Quarter: 2025Q1

REPORT INFORMATION
  Report Type: Report from Study
  Country: US (occurrence: US)
  Receive Date: 20240219
  Receipt Date: 20250205
  Transmission Date: 20250409
  Serious: No
  Sender: AURINIA PHARMACEUTICALS
  Company Number: US-AURINIA PHARMACEUTICALS INC.-AUR-004349

PATIENT
  Age: 42 Year
  Sex: Female

DRUGS (3)
  1. LUPKYNIS [Suspect]
     Active Substance: VOCLOSPORIN
     Indication: Lupus nephritis
     Dosage: 23.7 MILLIGRAM, BID
     Route: 048
     Dates: start: 20220920, end: 202309
  2. LUPKYNIS [Suspect]
     Active Substance: VOCLOSPORIN
     Dosage: 23.7 MILLIGRAM, BID
     Route: 048
     Dates: start: 202309
  3. LUPKYNIS [Suspect]
     Active Substance: VOCLOSPORIN
     Dosage: 23.7 MILLIGRAM, BID
     Route: 048

REACTIONS (10)
  - Blood urine present [Unknown]
  - Ear infection [Unknown]
  - Vomiting [Unknown]
  - Vertigo [Unknown]
  - Mobility decreased [Unknown]
  - Pain [Unknown]
  - Asthenia [Unknown]
  - Tinnitus [Unknown]
  - Depressed mood [Unknown]
  - Proteinuria [Unknown]

NARRATIVE: CASE EVENT DATE: 20230901
